FAERS Safety Report 8395593-6 (Version None)
Quarter: 2012Q2

REPORT INFORMATION
  Report Type: 
  Country: None (occurrence: None)
  Receive Date: 20120530
  Receipt Date: 20111020
  Transmission Date: 20120825
  Serious: No
  Sender: FDA-Public Use
  Company Number: US-GLAXOSMITHKLINE-A0949892A

PATIENT
  Age: 63 Year
  Sex: Female

DRUGS (3)
  1. VENTOLIN [Suspect]
     Indication: BRONCHITIS
     Dosage: 1PUFF TWICE PER DAY
     Route: 055
     Dates: start: 20111014, end: 20111016
  2. ZITHROMAX [Suspect]
  3. PREDNISONE TAB [Suspect]

REACTIONS (3)
  - CHEILITIS [None]
  - GLOSSODYNIA [None]
  - FUNGAL INFECTION [None]
